FAERS Safety Report 21733049 (Version 1)
Quarter: 2022Q4

REPORT INFORMATION
  Report Type: Spontaneous
  Country: US (occurrence: US)
  Receive Date: 20221215
  Receipt Date: 20221215
  Transmission Date: 20230113
  Serious: Yes (Other)
  Sender: FDA-Public Use
  Company Number: US-STRIDES ARCOLAB LIMITED-2022SP015919

PATIENT
  Age: 75 Year
  Sex: Male

DRUGS (7)
  1. TRIAMCINOLONE ACETONIDE [Suspect]
     Active Substance: TRIAMCINOLONE ACETONIDE
     Indication: Rash
     Dosage: UNK (CREAM)
     Route: 061
  2. PREDNISOLONE [Suspect]
     Active Substance: PREDNISOLONE
     Indication: Rash
     Dosage: 10 MILLIGRAM PER DAY
     Route: 048
  3. PREDNISOLONE [Suspect]
     Active Substance: PREDNISOLONE
     Dosage: 5 MILLIGRAM PER DAY
     Route: 048
  4. PREDNISOLONE [Suspect]
     Active Substance: PREDNISOLONE
     Dosage: 5 MILLIGRAM, EVERY 2 DAYS
     Route: 048
  5. LENALIDOMIDE [Concomitant]
     Active Substance: LENALIDOMIDE
     Indication: Plasma cell myeloma
     Dosage: 15 MILLIGRAM, UNKNOWN
     Route: 065
  6. CARFILZOMIB [Concomitant]
     Active Substance: CARFILZOMIB
     Indication: Plasma cell myeloma
     Dosage: UNK
     Route: 065
  7. DEXAMETHASONE [Concomitant]
     Active Substance: DEXAMETHASONE
     Indication: Plasma cell myeloma
     Dosage: 20 MILLIGRAM, UNKNOWN
     Route: 065

REACTIONS (1)
  - Drug ineffective [Unknown]
